FAERS Safety Report 4615968-8 (Version None)
Quarter: 2005Q1

REPORT INFORMATION
  Report Type: 
  Country: None (occurrence: None)
  Receive Date: 20050318
  Receipt Date: 20050307
  Transmission Date: 20050727
  Serious: Yes (Life-Threatening, Hospitalization)
  Sender: FDA-Public Use
  Company Number: 2005042457

PATIENT
  Age: 46 Year
  Sex: Female

DRUGS (2)
  1. PIROXICAM [Suspect]
     Indication: BURSITIS
     Dosage: 20 MG, ORAL
     Route: 048
     Dates: start: 20050129
  2. HYPERICUM PERFORATUM (HYPERICUM PERFORATUM) [Concomitant]

REACTIONS (1)
  - MYOCARDIAL INFARCTION [None]
